FAERS Safety Report 16416060 (Version 1)
Quarter: 2019Q2

REPORT INFORMATION
  Report Type: Spontaneous
  Country: US (occurrence: US)
  Receive Date: 20190611
  Receipt Date: 20190611
  Transmission Date: 20190711
  Serious: No
  Sender: FDA-Public Use
  Company Number: US-009507513-1906USA002172

PATIENT
  Sex: Male

DRUGS (3)
  1. INTRON A [Suspect]
     Active Substance: INTERFERON ALFA-2B
     Indication: CUTANEOUS T-CELL LYMPHOMA
     Dosage: ^25 MU MDV^, ^2 MILLION UNITS, MON/WED/FRI^
     Route: 058
     Dates: start: 20180410
  2. HYDROCODONE [Concomitant]
     Active Substance: HYDROCODONE
  3. IBUPROFEN. [Concomitant]
     Active Substance: IBUPROFEN

REACTIONS (6)
  - Confusional state [Unknown]
  - Asthenia [Unknown]
  - Fatigue [Unknown]
  - Product use in unapproved indication [Unknown]
  - Adverse event [Unknown]
  - Amnesia [Unknown]
